FAERS Safety Report 6438839-3 (Version None)
Quarter: 2009Q4

REPORT INFORMATION
  Report Type: 
  Country: None (occurrence: None)
  Receive Date: 20091111
  Receipt Date: 20091111
  Transmission Date: 20100525
  Serious: Yes (Other)
  Sender: FDA-Public Use
  Company Number: None

PATIENT
  Sex: Male
  Weight: 22.6799 kg

DRUGS (1)
  1. ZYRTEC ALLERGY [Suspect]
     Indication: HYPERSENSITIVITY
     Dosage: 2 TEASPOONFULS 1X PER DAY PO
     Route: 048
     Dates: start: 20080401, end: 20091105

REACTIONS (1)
  - TIC [None]
